FAERS Safety Report 21238758 (Version 4)
Quarter: 2023Q1

REPORT INFORMATION
  Report Type: Report from Study
  Country: DE (occurrence: DE)
  Receive Date: 20220822
  Receipt Date: 20230103
  Transmission Date: 20230418
  Serious: Yes (Hospitalization, Other)
  Sender: FDA-Public Use
  Company Number: DE-PFM-2020-04019

PATIENT
  Age: 82 Year
  Sex: Female
  Weight: 56 kg

DRUGS (21)
  1. MEKTOVI [Suspect]
     Active Substance: BINIMETINIB
     Indication: Metastatic malignant melanoma
     Dosage: 45 MG, BID (2/DAY)
     Route: 048
     Dates: start: 20200109, end: 20210917
  2. MEKTOVI [Suspect]
     Active Substance: BINIMETINIB
     Dosage: 45 MG, BID (2/DAY)
     Route: 048
     Dates: start: 20210925, end: 20211107
  3. MEKTOVI [Suspect]
     Active Substance: BINIMETINIB
     Dosage: 45 MG, BID (2/DAY)
     Route: 048
     Dates: start: 20211121, end: 20211224
  4. MEKTOVI [Suspect]
     Active Substance: BINIMETINIB
     Dosage: 45 MG, BID (2/DAY)
     Route: 048
     Dates: start: 20211231
  5. BRAFTOVI [Suspect]
     Active Substance: ENCORAFENIB
     Indication: Metastatic malignant melanoma
     Dosage: 450 MG, QD (1/DAY)
     Route: 048
     Dates: start: 20200109, end: 20210917
  6. BRAFTOVI [Suspect]
     Active Substance: ENCORAFENIB
     Dosage: 450 MG, QD (1/DAY)
     Route: 048
     Dates: start: 20210925, end: 20211107
  7. BRAFTOVI [Suspect]
     Active Substance: ENCORAFENIB
     Dosage: 450 MG, QD (1/DAY)
     Route: 048
     Dates: start: 20211121, end: 20211224
  8. BRAFTOVI [Suspect]
     Active Substance: ENCORAFENIB
     Dosage: 450 MG, QD (1/DAY)
     Route: 048
     Dates: start: 20211231
  9. AMLODIPINE BESYLATE [Concomitant]
     Active Substance: AMLODIPINE BESYLATE
     Dosage: UNK
     Route: 065
     Dates: start: 20190916, end: 20210917
  10. AMLODIPINE BESYLATE [Concomitant]
     Active Substance: AMLODIPINE BESYLATE
     Dosage: UNK
     Route: 065
     Dates: start: 20190916, end: 20210917
  11. RAMIPRIL [Concomitant]
     Active Substance: RAMIPRIL
     Dosage: UNK
     Route: 065
     Dates: start: 20200108, end: 20210917
  12. MESTINON [Concomitant]
     Active Substance: PYRIDOSTIGMINE BROMIDE
     Dosage: UNK
     Route: 065
     Dates: start: 19890301
  13. METHYLPREDNISOLONE ACEPONATE [Concomitant]
     Active Substance: METHYLPREDNISOLONE ACEPONATE
     Indication: Pruritus
     Dosage: UNK
     Route: 066
     Dates: start: 20220429, end: 20220527
  14. ASTRAZENECA COVID-19 VACCINE [Concomitant]
     Active Substance: AZD-1222
     Indication: Prophylaxis
     Dosage: DOSE 1, SINGLE
     Route: 065
     Dates: start: 20210315, end: 20210315
  15. ASTRAZENECA COVID-19 VACCINE [Concomitant]
     Active Substance: AZD-1222
     Indication: COVID-19 immunisation
     Dosage: DOSE 2, SINGLE
     Route: 065
     Dates: start: 20210607, end: 20210607
  16. COMIRNATY [Concomitant]
     Active Substance: TOZINAMERAN
     Indication: Prophylaxis
     Dosage: DOSE 1, SINGLE
     Route: 065
     Dates: start: 20211202, end: 20211202
  17. COMIRNATY [Concomitant]
     Active Substance: TOZINAMERAN
     Indication: COVID-19 immunisation
  18. METOPROLOL TARTRATE [Concomitant]
     Active Substance: METOPROLOL TARTRATE
     Dosage: UNK
     Route: 065
     Dates: start: 20210918, end: 20211101
  19. RAMIPRIL [Concomitant]
     Active Substance: RAMIPRIL
     Dosage: UNK
     Route: 065
     Dates: start: 20210918
  20. AMLODIPINE [Concomitant]
     Active Substance: AMLODIPINE BESYLATE
     Dosage: UNK
     Route: 065
     Dates: start: 20210918
  21. ADVANTAN MILK [Concomitant]
     Indication: Pruritus
     Dosage: UNK
     Route: 061
     Dates: start: 20200429, end: 20200527

REACTIONS (18)
  - Urinary tract infection [Recovered/Resolved]
  - Basal cell carcinoma [Recovered/Resolved]
  - Second primary malignancy [Recovered/Resolved]
  - Lipase increased [Recovered/Resolved]
  - Amylase increased [Recovered/Resolved]
  - Lipase increased [Recovered/Resolved]
  - Amylase increased [Not Recovered/Not Resolved]
  - Pruritus [Recovered/Resolved]
  - Blood creatinine increased [Not Recovered/Not Resolved]
  - Diarrhoea [Recovered/Resolved]
  - Ocular discomfort [Not Recovered/Not Resolved]
  - Headache [Not Recovered/Not Resolved]
  - Muscle spasms [Recovered/Resolved]
  - Muscle spasms [Recovered/Resolved]
  - Aspartate aminotransferase increased [Recovered/Resolved]
  - Alanine aminotransferase increased [Recovered/Resolved]
  - Oral dysaesthesia [Not Recovered/Not Resolved]
  - Dizziness [Not Recovered/Not Resolved]

NARRATIVE: CASE EVENT DATE: 20200304
